FAERS Safety Report 10172883 (Version 1)
Quarter: 2014Q2

REPORT INFORMATION
  Report Type: Spontaneous
  Country: US (occurrence: None)
  Receive Date: 20140416
  Receipt Date: 20140416
  Transmission Date: 20141212
  Serious: No
  Sender: FDA-Public Use
  Company Number: 163-POMAL-13120935

PATIENT
  Age: 73 Year
  Sex: Female
  Weight: 74.8 kg

DRUGS (11)
  1. POMALYST (POMALIDOMIDE) (4 MILLIGRAM, CAPSULES) [Suspect]
     Indication: PLASMA CELL MYELOMA
     Dosage: 4 MG, 21 IN 21 D, PO
     Route: 048
     Dates: start: 20131003
  2. VITAMIN B12 (CYANOCOBALAMIN) [Concomitant]
  3. LASIX (FUROSEMIDE) [Concomitant]
  4. RITALIN [Concomitant]
  5. KLOR CON M20 (POTASSIUM CHLORIDE) [Concomitant]
  6. CALCIUM + VITAMIN D (LEKOVIT CA) [Concomitant]
  7. ASPIRIN (ACETYLSALICYLIC ACID) [Concomitant]
  8. XARELTO (RIVAROXABAN) [Concomitant]
  9. TRUSOPT (DORZOLAMIDE HYDROCHLORIDE) (20 MILLIGRAM/MILLILITERS, EYE DROPS, SOLUTION) (DORZOLAMIDE HYDROCHLORIDE) [Concomitant]
  10. CORICIDIN (CORICIDIN) [Concomitant]
  11. VITAMIN C (ASCORBIC ACID) [Concomitant]

REACTIONS (3)
  - Nasopharyngitis [None]
  - Fatigue [None]
  - Neuropathy peripheral [None]
